FAERS Safety Report 12727759 (Version 1)
Quarter: 2016Q3

REPORT INFORMATION
  Report Type: Spontaneous
  Country: US (occurrence: US)
  Receive Date: 20160909
  Receipt Date: 20160909
  Transmission Date: 20161109
  Serious: Yes (Death, Other)
  Sender: FDA-Public Use
  Company Number: US-GE HEALTHCARE MEDICAL DIAGNOSTICS-OMPQ-PR-1608S-0511

PATIENT
  Age: 64 Year
  Sex: Male
  Weight: 103.51 kg

DRUGS (3)
  1. OMNIPAQUE [Suspect]
     Active Substance: IOHEXOL
     Indication: SMALL CELL CARCINOMA
     Route: 042
     Dates: start: 20151123, end: 20151123
  2. OMNIPAQUE [Suspect]
     Active Substance: IOHEXOL
     Indication: DIAGNOSTIC PROCEDURE
  3. OMNIPAQUE [Suspect]
     Active Substance: IOHEXOL
     Indication: OESOPHAGEAL CARCINOMA

REACTIONS (3)
  - Contrast media reaction [Fatal]
  - Cough [Unknown]
  - Unresponsive to stimuli [Unknown]

NARRATIVE: CASE EVENT DATE: 20151123
